FAERS Safety Report 5230771-6 (Version None)
Quarter: 2007Q1

REPORT INFORMATION
  Report Type: 
  Country: None (occurrence: None)
  Receive Date: 20070206
  Receipt Date: 20070125
  Transmission Date: 20070707
  Serious: Yes (Life-Threatening, Hospitalization)
  Sender: FDA-Public Use
  Company Number: FR-SANOFI-SYNTHELABO-A02200700307

PATIENT
  Sex: Male

DRUGS (1)
  1. DANATROL [Suspect]
     Indication: THROMBOCYTOPENIA
     Route: 048
     Dates: end: 20061203

REACTIONS (3)
  - COUGH [None]
  - HAEMOPTYSIS [None]
  - PULMONARY EMBOLISM [None]
